FAERS Safety Report 4433383-7 (Version None)
Quarter: 2004Q3

REPORT INFORMATION
  Report Type: 
  Country: None (occurrence: None)
  Receive Date: 20040824
  Receipt Date: 20040811
  Transmission Date: 20050211
  Serious: Yes (Life-Threatening)
  Sender: FDA-Public Use
  Company Number: 04H-087-0270902-00

PATIENT
  Age: 37 Year
  Sex: Male
  Weight: 68 kg

DRUGS (4)
  1. SUCCINYLCHOLINE CHLORIDE [Suspect]
     Indication: ANAESTHESIA
     Dosage: 100 MG
  2. ISOFLURANE [Suspect]
     Indication: ANAESTHESIA
     Dosage: 1.0-1.5%
  3. THIOPENTAL SODIUM [Concomitant]
  4. NITROUS OXIDE [Concomitant]

REACTIONS (9)
  - BLOOD URINE [None]
  - DRUG INTERACTION [None]
  - HAEMODIALYSIS [None]
  - HYPERTHERMIA MALIGNANT [None]
  - OLIGURIA [None]
  - PULMONARY OEDEMA [None]
  - RENAL FAILURE ACUTE [None]
  - RHABDOMYOLYSIS [None]
  - URINARY TRACT INJURY [None]
